FAERS Safety Report 7229031-3 (Version None)
Quarter: 2011Q1

REPORT INFORMATION
  Report Type: 
  Country: None (occurrence: None)
  Receive Date: 20110117
  Receipt Date: 20110113
  Transmission Date: 20110831
  Serious: Yes (Death)
  Sender: FDA-Public Use
  Company Number: JP-JNJFOC-20101107682

PATIENT
  Age: 73 Year
  Sex: Female
  Weight: 36 kg

DRUGS (12)
  1. DEPAS [Concomitant]
     Indication: ANXIETY
     Route: 048
  2. GRAMALIL [Concomitant]
     Indication: PSYCHOMOTOR HYPERACTIVITY
     Route: 048
  3. FLUPHENAZINE [Concomitant]
     Indication: SCHIZOPHRENIA
     Route: 048
  4. GASMOTIN [Concomitant]
     Indication: GASTRITIS
     Route: 048
  5. MUCOSTA [Concomitant]
     Indication: GASTRITIS
     Route: 048
  6. NON-PYRINE COLD PREPARATION [Suspect]
     Indication: NASOPHARYNGITIS
     Route: 048
  7. GRAMALIL [Concomitant]
     Indication: DELIRIUM
     Route: 048
  8. PAXIL [Concomitant]
     Indication: DEPRESSION
     Route: 048
  9. RISPERDAL [Suspect]
     Indication: SCHIZOPHRENIA
     Route: 048
  10. AKINETON [Concomitant]
     Indication: PARKINSONISM
     Route: 048
  11. SILECE [Concomitant]
     Indication: INSOMNIA
     Route: 048
  12. SOLANAX [Concomitant]
     Indication: INSOMNIA
     Route: 048

REACTIONS (3)
  - NASOPHARYNGITIS [None]
  - HYPERSOMNIA [None]
  - RESPIRATORY ARREST [None]
